FAERS Safety Report 9836815 (Version 1)
Quarter: 2014Q1

REPORT INFORMATION
  Report Type: Spontaneous
  Country: US (occurrence: US)
  Receive Date: 20140123
  Receipt Date: 20140123
  Transmission Date: 20141002
  Serious: No
  Sender: FDA-Public Use
  Company Number: US-PFIZER INC-2014015682

PATIENT
  Sex: Female

DRUGS (5)
  1. ADVIL [Suspect]
     Indication: FEELING ABNORMAL
     Dosage: UNK
  2. IBUPROFEN [Suspect]
     Indication: FEELING ABNORMAL
     Dosage: UNK
  3. TYLENOL [Suspect]
     Indication: FEELING ABNORMAL
     Dosage: UNK
  4. ASPIRIN [Suspect]
     Indication: FEELING ABNORMAL
     Dosage: UNK
  5. ALEVE [Suspect]
     Indication: FEELING ABNORMAL
     Dosage: UNK

REACTIONS (1)
  - Drug ineffective [Unknown]
